FAERS Safety Report 6007425-1 (Version None)
Quarter: 2008Q4

REPORT INFORMATION
  Report Type: 
  Country: None (occurrence: None)
  Receive Date: 20081217
  Receipt Date: 20080415
  Transmission Date: 20090506
  Serious: No
  Sender: FDA-Public Use
  Company Number: US-ASTRAZENECA-2008UW07751

PATIENT
  Age: 81 Year
  Sex: Female
  Weight: 72.6 kg

DRUGS (6)
  1. CRESTOR [Suspect]
     Indication: BLOOD CHOLESTEROL INCREASED
     Route: 048
     Dates: start: 20080201
  2. ZETIA [Concomitant]
  3. RAMIPRIL [Concomitant]
  4. METFORMIN HCL [Concomitant]
  5. ATACAND [Concomitant]
  6. FOSAMAX [Concomitant]

REACTIONS (1)
  - BITE [None]
